FAERS Safety Report 12518507 (Version 1)
Quarter: 2016Q2

REPORT INFORMATION
  Report Type: Spontaneous
  Country: CA (occurrence: CA)
  Receive Date: 20160630
  Receipt Date: 20160630
  Transmission Date: 20160815
  Serious: Yes (Other)
  Sender: FDA-Public Use
  Company Number: CA-PFIZER INC-2016318221

PATIENT
  Sex: Female

DRUGS (1)
  1. ADVIL ARTHRITIS PAIN [Suspect]
     Active Substance: IBUPROFEN
     Dosage: UNK

REACTIONS (5)
  - Choking [Unknown]
  - Sensation of foreign body [Unknown]
  - Burning sensation [Unknown]
  - Throat irritation [Unknown]
  - Exposure via direct contact [Unknown]
